FAERS Safety Report 6104963-8 (Version None)
Quarter: 2009Q1

REPORT INFORMATION
  Report Type: 
  Country: None (occurrence: None)
  Receive Date: 20090306
  Receipt Date: 20090226
  Transmission Date: 20090719
  Serious: Yes (Other)
  Sender: FDA-Public Use
  Company Number: GB-ABBOTT-09P-167-0559488-00

PATIENT
  Sex: Female

DRUGS (2)
  1. KLARICID [Suspect]
     Indication: PNEUMONIA
     Dates: start: 20090116, end: 20090118
  2. AMOXICILLIN [Concomitant]
     Indication: DRUG USE FOR UNKNOWN INDICATION

REACTIONS (5)
  - ADVERSE DRUG REACTION [None]
  - CHEILITIS [None]
  - HALLUCINATION [None]
  - NIGHTMARE [None]
  - STOMATITIS [None]
